FAERS Safety Report 17409233 (Version 6)
Quarter: 2021Q1

REPORT INFORMATION
  Report Type: Report from Study
  Country: CA (occurrence: CA)
  Receive Date: 20200212
  Receipt Date: 20210208
  Transmission Date: 20210419
  Serious: Yes (Other)
  Sender: FDA-Public Use
  Company Number: CA-PFIZER INC-2017498634

PATIENT
  Age: 58 Year
  Sex: Female

DRUGS (11)
  1. PANTOLOC [Suspect]
     Active Substance: PANTOPRAZOLE SODIUM
     Indication: GASTROOESOPHAGEAL REFLUX DISEASE
     Dosage: UNK
     Route: 065
  2. ENTYVIO [Suspect]
     Active Substance: VEDOLIZUMAB
     Dosage: 300 MG, CYCLIC (Q4WEEKS)
     Route: 042
  3. ENTYVIO [Suspect]
     Active Substance: VEDOLIZUMAB
     Dosage: 300 MG
     Route: 042
  4. ENTYVIO [Suspect]
     Active Substance: VEDOLIZUMAB
     Dosage: 300 MG
     Route: 042
  5. ENTYVIO [Suspect]
     Active Substance: VEDOLIZUMAB
     Dosage: 300 MG, CYCLIC (Q4WEEKS)
     Route: 042
     Dates: start: 20190905
  6. OLMETEC [Concomitant]
     Active Substance: OLMESARTAN MEDOXOMIL
     Indication: BLOOD PRESSURE ABNORMAL
     Dosage: UNK
  7. ENTYVIO [Suspect]
     Active Substance: VEDOLIZUMAB
     Indication: CROHN^S DISEASE
     Dosage: 300 MG
     Route: 042
     Dates: start: 20160921
  8. ENTYVIO [Suspect]
     Active Substance: VEDOLIZUMAB
     Dosage: 300 MG, CYCLIC (Q4WEEKS)
     Route: 042
  9. ENTYVIO [Suspect]
     Active Substance: VEDOLIZUMAB
     Dosage: 300 MG, CYCLIC (Q4WEEKS)
     Route: 042
  10. ENTYVIO [Suspect]
     Active Substance: VEDOLIZUMAB
     Dosage: UNK
     Dates: start: 20171121
  11. ENTYVIO [Suspect]
     Active Substance: VEDOLIZUMAB
     Dosage: 300 MILLIGRAM, Q4WEEKS
     Route: 042
     Dates: end: 20210108

REACTIONS (8)
  - Gout [Unknown]
  - Gastroenteritis viral [Recovered/Resolved]
  - Abdominal pain [Unknown]
  - Poor venous access [Unknown]
  - Faecal calprotectin increased [Unknown]
  - Abdominal hernia [Unknown]
  - Diarrhoea [Unknown]
  - Infusion site extravasation [Unknown]

NARRATIVE: CASE EVENT DATE: 201711
